FAERS Safety Report 9001570 (Version 1)
Quarter: 2013Q1

REPORT INFORMATION
  Report Type: Spontaneous
  Country: US (occurrence: US)
  Receive Date: 20130107
  Receipt Date: 20130107
  Transmission Date: 20140127
  Serious: No
  Sender: FDA-Public Use
  Company Number: US-PFIZER INC-2013001844

PATIENT
  Sex: Female

DRUGS (2)
  1. LEVOXYL [Suspect]
     Dosage: 50 UG, 2X/DAY
     Dates: start: 2010
  2. SYNTHROID [Suspect]
     Dosage: UNK
     Dates: start: 2007

REACTIONS (2)
  - Drug hypersensitivity [Unknown]
  - Urticaria [Unknown]
